FAERS Safety Report 7413556-1 (Version None)
Quarter: 2011Q2

REPORT INFORMATION
  Report Type: 
  Country: None (occurrence: None)
  Receive Date: 20110405
  Receipt Date: 20110321
  Transmission Date: 20111010
  Serious: Yes (Hospitalization)
  Sender: FDA-Public Use
  Company Number: ACO_22510_2011

PATIENT
  Age: 62 Year
  Sex: Female
  Weight: 83.9 kg

DRUGS (5)
  1. HYDROCHLOROTHIAZIDE [Concomitant]
  2. VICODIN [Concomitant]
  3. AMPYRA [Suspect]
     Indication: GAIT DISTURBANCE
     Dosage: 10 MG, BID, ORAL
     Route: 048
     Dates: start: 20100701, end: 20110317
  4. AMPYRA [Suspect]
     Indication: GAIT DISTURBANCE
     Dosage: 10 MG, BID, ORAL
     Route: 048
     Dates: start: 20110318
  5. AMITRIPTYLINE (AMITRIPTYLINE) [Concomitant]

REACTIONS (5)
  - HYPOAESTHESIA [None]
  - NEPHROLITHIASIS [None]
  - INSOMNIA [None]
  - INAPPROPRIATE SCHEDULE OF DRUG ADMINISTRATION [None]
  - PAIN IN EXTREMITY [None]
